FAERS Safety Report 25927900 (Version 1)
Quarter: 2025Q4

REPORT INFORMATION
  Report Type: Spontaneous
  Country: IN (occurrence: IN)
  Receive Date: 20251016
  Receipt Date: 20251016
  Transmission Date: 20260118
  Serious: Yes (Hospitalization, Other)
  Sender: PHARMOBEDIENT CONSULTING, LLC
  Company Number: IN-Pharmobedient-000325

PATIENT
  Age: 22 Year
  Sex: Male
  Weight: 0 kg

DRUGS (2)
  1. ONDANSETRON [Suspect]
     Active Substance: ONDANSETRON
     Indication: Product used for unknown indication
  2. ORS [Concomitant]
     Indication: Product used for unknown indication

REACTIONS (1)
  - Tubulointerstitial nephritis [Recovered/Resolved]
